FAERS Safety Report 12448782 (Version 4)
Quarter: 2016Q3

REPORT INFORMATION
  Report Type: Report from Study
  Country: AU (occurrence: AU)
  Receive Date: 20160608
  Receipt Date: 20160908
  Transmission Date: 20161109
  Serious: Yes (Hospitalization, Other)
  Sender: FDA-Public Use
  Company Number: AU-BAYER-2016-017793

PATIENT
  Age: 43 Year
  Sex: Female

DRUGS (7)
  1. ADEMPAS [Suspect]
     Active Substance: RIOCIGUAT
     Indication: PULMONARY HYPERTENSION
     Dosage: 2.5 MG, TID
     Route: 048
     Dates: start: 20160621
  2. ADEMPAS [Suspect]
     Active Substance: RIOCIGUAT
     Indication: PULMONARY HYPERTENSION
     Dosage: UNK
     Dates: start: 20160118
  3. ADEMPAS [Suspect]
     Active Substance: RIOCIGUAT
     Indication: PULMONARY HYPERTENSION
     Dosage: 1 MG, TID
     Route: 048
  4. ADEMPAS [Suspect]
     Active Substance: RIOCIGUAT
     Indication: PULMONARY HYPERTENSION
     Dosage: 2.5MG (TWICE), 2.0MG (NIGHT)
     Route: 048
  5. OXYGEN. [Concomitant]
     Active Substance: OXYGEN
  6. ADEMPAS [Suspect]
     Active Substance: RIOCIGUAT
     Indication: PULMONARY HYPERTENSION
     Dosage: 1.5MG(MORNING), 1.0MG (AFTERNOON), 1.5MG(NIGHT)
     Route: 048
     Dates: start: 20160213
  7. ADEMPAS [Suspect]
     Active Substance: RIOCIGUAT
     Indication: PULMONARY HYPERTENSION
     Dosage: 1 MG, TID
     Route: 048

REACTIONS (12)
  - Pericardial effusion [Unknown]
  - Erythema [Recovered/Resolved]
  - Erythema [None]
  - Lung disorder [Not Recovered/Not Resolved]
  - Unevaluable event [None]
  - Feeling hot [None]
  - Vasodilation procedure [Unknown]
  - Bronchoscopy [Unknown]
  - Hypotension [None]
  - Feeling hot [Recovered/Resolved]
  - Pneumonia [Recovered/Resolved]
  - Cough [Not Recovered/Not Resolved]

NARRATIVE: CASE EVENT DATE: 20160206
